FAERS Safety Report 22165116 (Version 1)
Quarter: 2023Q2

REPORT INFORMATION
  Report Type: Other
  Country: IE (occurrence: IE)
  Receive Date: 20230403
  Receipt Date: 20230403
  Transmission Date: 20230722
  Serious: Yes (Other)
  Sender: FDA-Public Use
  Company Number: IE-002147023-NVSC2021IE257572

PATIENT
  Age: 23 Year
  Sex: Female

DRUGS (3)
  1. XOLAIR [Suspect]
     Active Substance: OMALIZUMAB
     Indication: Asthma
     Dosage: 450 MG, EVERY 4 WEEKS
     Route: 058
     Dates: start: 202109
  2. XOLAIR [Suspect]
     Active Substance: OMALIZUMAB
     Dosage: 450 MG, EVERY 4 WEEKS
     Route: 058
  3. BETNOVATE [Concomitant]
     Active Substance: BETAMETHASONE
     Indication: Product used for unknown indication
     Dosage: UNK
     Route: 065

REACTIONS (7)
  - Paraesthesia oral [Recovering/Resolving]
  - Ocular hyperaemia [Recovering/Resolving]
  - Lip erythema [Recovering/Resolving]
  - Lip swelling [Recovering/Resolving]
  - Eye disorder [Recovering/Resolving]
  - Eye oedema [Recovered/Resolved]
  - Eyelid rash [Recovered/Resolved]
